FAERS Safety Report 9081558 (Version 1)
Quarter: 2013Q1

REPORT INFORMATION
  Report Type: Report from Study
  Country: US (occurrence: US)
  Receive Date: 20130130
  Receipt Date: 20130130
  Transmission Date: 20140127
  Serious: Yes (Other)
  Sender: FDA-Public Use
  Company Number: US-ABBOTT-12P-163-0961251-00

PATIENT
  Age: 90 Year
  Sex: Female

DRUGS (10)
  1. HUMIRA 40 MG/0.8 ML PEN [Suspect]
     Indication: RHEUMATOID ARTHRITIS
  2. FLEXIDINE [Concomitant]
     Indication: ARRHYTHMIA
     Dosage: 50MG QAM, 50MG QPM
  3. VESICARE [Concomitant]
     Indication: BLADDER DISORDER
  4. FOLIC ACID [Concomitant]
     Indication: PRODUCT USED FOR UNKNOWN INDICATION
     Dosage: DAILY
  5. ASA [Concomitant]
     Indication: PRODUCT USED FOR UNKNOWN INDICATION
  6. STOOL SOFTENER [Concomitant]
     Indication: PRODUCT USED FOR UNKNOWN INDICATION
  7. HYDROCODONE [Concomitant]
     Indication: PAIN
     Dosage: 7.5 Q6H PRN
  8. MTV [Concomitant]
     Indication: PRODUCT USED FOR UNKNOWN INDICATION
  9. B3 [Concomitant]
     Indication: PRODUCT USED FOR UNKNOWN INDICATION
  10. GLUCOSAMINE + CHONDROITIN [Concomitant]
     Indication: PRODUCT USED FOR UNKNOWN INDICATION
     Dosage: 750/600 MG QD

REACTIONS (2)
  - Shoulder arthroplasty [Recovering/Resolving]
  - Injection site bruising [Unknown]
